FAERS Safety Report 24138672 (Version 2)
Quarter: 2024Q3

REPORT INFORMATION
  Report Type: Spontaneous
  Country: US (occurrence: US)
  Receive Date: 20240725
  Receipt Date: 20240925
  Transmission Date: 20241016
  Serious: No
  Sender: BAUSCH AND LOMB
  Company Number: US-BAUSCHBL-2024BNL030214

PATIENT
  Age: 75 Year
  Sex: Male

DRUGS (1)
  1. XIIDRA [Suspect]
     Active Substance: LIFITEGRAST
     Indication: Dry eye
     Route: 047
     Dates: start: 20240618

REACTIONS (5)
  - Burning sensation [Unknown]
  - Pruritus [Unknown]
  - Ill-defined disorder [Unknown]
  - Vision blurred [Unknown]
  - Drug ineffective [Unknown]
